FAERS Safety Report 4352771-0 (Version None)
Quarter: 2004Q2

REPORT INFORMATION
  Report Type: 
  Country: None (occurrence: None)
  Receive Date: 20040429
  Receipt Date: 20040414
  Transmission Date: 20050107
  Serious: Yes (Death, Hospitalization)
  Sender: FDA-Public Use
  Company Number: US-SHR-03-012708

PATIENT
  Age: 63 Year
  Sex: Male
  Weight: 63.9 kg

DRUGS (13)
  1. BETASERON [Suspect]
     Indication: MULTIPLE SCLEROSIS
     Dosage: 8 MIU, 2X/WEEK, SUBCUTANEOUS
     Route: 058
     Dates: start: 20021107, end: 20030807
  2. LAMISIL (TERBINAFINE HYDROCHLORIDE) [Concomitant]
  3. NIZORAL-LIQUID (KETOCONAZOLE) [Concomitant]
  4. DARVOCET-N 100 [Concomitant]
  5. AMANTADINE HCL [Concomitant]
  6. CELEXA [Concomitant]
  7. BACLOFEN [Concomitant]
  8. DEPAKOTE [Concomitant]
  9. IMITREX ^GLAXO^ (SUMATRIPTAN) [Concomitant]
  10. COUMADIN [Concomitant]
  11. DIFLUCAN [Concomitant]
  12. LOTRIMIN [Concomitant]
  13. DETROL [Concomitant]

REACTIONS (18)
  - ANAEMIA [None]
  - CONVULSION [None]
  - DELIRIUM [None]
  - DYSURIA [None]
  - FUNGAL INFECTION [None]
  - GENERAL PHYSICAL HEALTH DETERIORATION [None]
  - IMPAIRED HEALING [None]
  - INFECTION [None]
  - INJECTION SITE REACTION [None]
  - PROSTATIC DISORDER [None]
  - PROSTATISM [None]
  - RASH PRURITIC [None]
  - SCAB [None]
  - SKIN LESION [None]
  - SKIN NECROSIS [None]
  - TINEA PEDIS [None]
  - URINARY INCONTINENCE [None]
  - URINARY RETENTION [None]
